FAERS Safety Report 8551890-2 (Version None)
Quarter: 2012Q3

REPORT INFORMATION
  Report Type: 
  Country: None (occurrence: None)
  Receive Date: 20120730
  Receipt Date: 20120723
  Transmission Date: 20120928
  Serious: Yes (Hospitalization)
  Sender: FDA-Public Use
  Company Number: PHHY2012DE063181

PATIENT
  Age: 73 Year
  Sex: Male

DRUGS (4)
  1. MARCUMAR [Suspect]
     Indication: ANTICOAGULANT THERAPY
     Route: 048
  2. CLOPIDOGREL [Concomitant]
     Dosage: 75 MG, UNK
  3. ACETYLSALICYLIC ACID SRT [Suspect]
     Indication: ANTICOAGULANT THERAPY
     Dosage: 100 MG, UNK
     Route: 048
  4. HYPNOTICS AND SEDATIVES [Concomitant]

REACTIONS (2)
  - DIVERTICULUM INTESTINAL HAEMORRHAGIC [None]
  - GASTROINTESTINAL HAEMORRHAGE [None]
